FAERS Safety Report 4372750-7 (Version None)
Quarter: 2004Q2

REPORT INFORMATION
  Report Type: 
  Country: None (occurrence: None)
  Receive Date: 20040526
  Receipt Date: 20040513
  Transmission Date: 20050107
  Serious: Yes (Other)
  Sender: FDA-Public Use
  Company Number: 2004010465

PATIENT
  Sex: Male

DRUGS (6)
  1. ZITHROMAX [Suspect]
     Indication: RESPIRATORY DISORDER
     Dosage: 1 IN 1 D, ORAL
     Route: 048
     Dates: start: 20030101
  2. HYDROCHLOROTHIAZIDE [Concomitant]
  3. METHIMAZOLE [Concomitant]
  4. NADOLOL [Concomitant]
  5. ALPRAZOLAM [Concomitant]
  6. MUPIROCIN (MUPIROCIN) [Concomitant]

REACTIONS (12)
  - ASPERGILLOSIS [None]
  - ASTHENIA [None]
  - BACTERIAL INFECTION [None]
  - BRONCHIECTASIS [None]
  - CANDIDIASIS [None]
  - CONDITION AGGRAVATED [None]
  - FUNGAL INFECTION [None]
  - MYCOBACTERIAL INFECTION [None]
  - RHINITIS [None]
  - SPUTUM CULTURE POSITIVE [None]
  - STAPHYLOCOCCAL INFECTION [None]
  - TONGUE DISORDER [None]
